FAERS Safety Report 6223165-8 (Version None)
Quarter: 2009Q2

REPORT INFORMATION
  Report Type: 
  Country: None (occurrence: None)
  Receive Date: 20090609
  Receipt Date: 20090605
  Transmission Date: 20091009
  Serious: Yes (Death)
  Sender: FDA-Public Use
  Company Number: FR-WYE-G03750709

PATIENT
  Age: 40 Year
  Sex: Male

DRUGS (3)
  1. TORISEL [Suspect]
     Indication: METASTATIC RENAL CELL CARCINOMA
     Dosage: 25 MG 1X PER 1 WK INTRAVENOUS
     Route: 042
     Dates: start: 20090211, end: 20090513
  2. AVASTIN [Suspect]
     Indication: METASTATIC RENAL CELL CARCINOMA
     Dosage: 1220 MG 1X PER 2 WK INTRAVENOUS
     Route: 042
     Dates: start: 20090211, end: 20090506
  3. IRBESARTAN + HYDROCHLOROTHIAZIDE [Concomitant]

REACTIONS (3)
  - CARDIAC ARREST [None]
  - DRUG TOXICITY [None]
  - SYSTOLIC HYPERTENSION [None]
